FAERS Safety Report 5314458-7 (Version None)
Quarter: 2007Q2

REPORT INFORMATION
  Report Type: 
  Country: None (occurrence: None)
  Receive Date: 20070502
  Receipt Date: 20070424
  Transmission Date: 20071010
  Serious: Yes (Death)
  Sender: FDA-Public Use
  Company Number: US-BAYER-200711307BWH

PATIENT
  Age: 80 Year
  Sex: Male

DRUGS (2)
  1. AVELOX [Suspect]
     Indication: SINUSITIS
     Route: 048
  2. PREDNISONE TAB [Suspect]
     Indication: SINUSITIS

REACTIONS (1)
  - DEATH [None]
